FAERS Safety Report 15225565 (Version 1)
Quarter: 2018Q3

REPORT INFORMATION
  Report Type: Report from Study
  Country: KR (occurrence: KR)
  Receive Date: 20180801
  Receipt Date: 20180801
  Transmission Date: 20181010
  Serious: Yes (Hospitalization)
  Sender: FDA-Public Use
  Company Number: KR-AMGEN-KORNI2018105186

PATIENT
  Age: 39 Year
  Sex: Female

DRUGS (8)
  1. DOCETAXEL. [Concomitant]
     Active Substance: DOCETAXEL
     Dosage: 95 MG
     Dates: start: 20180614, end: 20180614
  2. PEGFILGRASTIM [Suspect]
     Active Substance: PEGFILGRASTIM
     Dosage: 6 MG, QD
     Route: 058
     Dates: start: 20180615, end: 20180615
  3. PEGFILGRASTIM [Suspect]
     Active Substance: PEGFILGRASTIM
     Indication: BREAST CANCER
     Dosage: 6 MG, QD
     Route: 058
     Dates: start: 20180525, end: 20180525
  4. DOCETAXEL. [Concomitant]
     Active Substance: DOCETAXEL
     Dosage: 95 MG
     Dates: start: 20180524, end: 20180524
  5. CYCLOPHOSPHAMIDE. [Concomitant]
     Active Substance: CYCLOPHOSPHAMIDE
     Dosage: 948 MG
     Dates: start: 20180524, end: 20180524
  6. DOCETAXEL. [Concomitant]
     Active Substance: DOCETAXEL
     Indication: BREAST CANCER
     Dosage: 95 MG
     Dates: start: 20180504, end: 20180504
  7. CYCLOPHOSPHAMIDE. [Concomitant]
     Active Substance: CYCLOPHOSPHAMIDE
     Indication: BREAST CANCER
     Dosage: 948 MG
     Dates: start: 20180504, end: 20180504
  8. CYCLOPHOSPHAMIDE. [Concomitant]
     Active Substance: CYCLOPHOSPHAMIDE
     Dosage: 948 MG
     Dates: start: 20180614, end: 20180614

REACTIONS (1)
  - Asthenia [Recovered/Resolved]

NARRATIVE: CASE EVENT DATE: 20180621
